FAERS Safety Report 24825048 (Version 1)
Quarter: 2025Q1

REPORT INFORMATION
  Report Type: Spontaneous
  Country: GB (occurrence: GB)
  Receive Date: 20250109
  Receipt Date: 20250109
  Transmission Date: 20250409
  Serious: Yes (Other)
  Sender: MYLAN
  Company Number: GB-MYLANLABS-2024M1111712

PATIENT
  Age: 18 Year
  Sex: Male
  Weight: 116 kg

DRUGS (25)
  1. CLOZARIL [Suspect]
     Active Substance: CLOZAPINE
     Indication: Schizophrenia
     Dosage: 12.5 MILLIGRAM, QD (ONCE DAILY)
     Route: 048
     Dates: start: 20241205
  2. CLOZARIL [Suspect]
     Active Substance: CLOZAPINE
     Dosage: 25 MILLIGRAM, QD (ONCE DAILY)
     Route: 048
     Dates: start: 20241206
  3. CLOZARIL [Suspect]
     Active Substance: CLOZAPINE
     Dosage: 37.5 MILLIGRAM, QD (ONCE DAILY)
     Route: 048
     Dates: start: 20241207, end: 20241207
  4. CLOZARIL [Suspect]
     Active Substance: CLOZAPINE
     Dosage: 50 MILLIGRAM, QD (ONCE DAILY)
     Route: 048
     Dates: start: 20241209
  5. CLOZARIL [Suspect]
     Active Substance: CLOZAPINE
     Dosage: 100 MILLIGRAM, QD (ONCE DAILY)
     Route: 048
     Dates: start: 20241211, end: 20241218
  6. CLOZARIL [Suspect]
     Active Substance: CLOZAPINE
     Indication: Schizophrenia
     Dosage: 125 MILLIGRAM, QD (ONCE DAILY)
     Route: 048
     Dates: start: 20241219, end: 20241223
  7. CLOZARIL [Suspect]
     Active Substance: CLOZAPINE
     Indication: Schizophrenia
     Dosage: 125 MILLIGRAM, QD (ONCE DAILY)
     Route: 048
     Dates: start: 20241219, end: 20241223
  8. CLOZAPINE [Suspect]
     Active Substance: CLOZAPINE
     Indication: Schizophrenia
     Dosage: 37.5 MILLIGRAM, QD (ONCE DAILY)
     Route: 048
     Dates: start: 20241208, end: 20241208
  9. LORAZEPAM [Concomitant]
     Active Substance: LORAZEPAM
     Indication: Schizophrenia
     Route: 048
     Dates: start: 20241102
  10. LORAZEPAM [Concomitant]
     Active Substance: LORAZEPAM
     Dosage: 2 MILLIGRAM, QD (ONCE DAILY)
     Route: 048
     Dates: start: 20241118, end: 20241128
  11. LORAZEPAM [Concomitant]
     Active Substance: LORAZEPAM
     Route: 048
     Dates: end: 20241214
  12. LORAZEPAM [Concomitant]
     Active Substance: LORAZEPAM
     Route: 065
  13. CLONAZEPAM [Concomitant]
     Active Substance: CLONAZEPAM
     Indication: Schizophrenia
     Dosage: 500 MICROGRAM, BID (TWICE DAILY)
     Route: 048
     Dates: start: 20241129
  14. CLONAZEPAM [Concomitant]
     Active Substance: CLONAZEPAM
     Dosage: 1000 MICROGRAM, BID (TWICE DAILY)
     Route: 048
     Dates: start: 20241202
  15. CLONAZEPAM [Concomitant]
     Active Substance: CLONAZEPAM
     Dosage: 1500 MICROGRAM, BID (TWICE DAILY)
     Route: 048
     Dates: start: 20241209
  16. CLONAZEPAM [Concomitant]
     Active Substance: CLONAZEPAM
     Dosage: 1000 MICROGRAM, BID (TWICE DAILY)
     Route: 048
     Dates: start: 20241219
  17. CLONAZEPAM [Concomitant]
     Active Substance: CLONAZEPAM
     Dosage: 500 MICROGRAM, BID (TWICE DAILY)
     Route: 048
     Dates: start: 20241221, end: 20241223
  18. CLONAZEPAM [Concomitant]
     Active Substance: CLONAZEPAM
     Dosage: 1000 MICROGRAM, BID (TWICE DAILY)
     Route: 065
     Dates: start: 20241223
  19. HALOPERIDOL [Concomitant]
     Active Substance: HALOPERIDOL
     Indication: Schizophrenia
     Route: 048
     Dates: start: 20241126, end: 20241127
  20. HALOPERIDOL [Concomitant]
     Active Substance: HALOPERIDOL
     Route: 048
     Dates: start: 20241130, end: 20241130
  21. HALOPERIDOL [Concomitant]
     Active Substance: HALOPERIDOL
     Route: 048
     Dates: start: 20241205, end: 20241206
  22. HALOPERIDOL [Concomitant]
     Active Substance: HALOPERIDOL
     Route: 048
     Dates: start: 20241210, end: 20241210
  23. ACETAMINOPHEN [Concomitant]
     Active Substance: ACETAMINOPHEN
     Indication: Headache
     Route: 048
     Dates: start: 20241126, end: 20241230
  24. IBUPROFEN [Concomitant]
     Active Substance: IBUPROFEN
     Indication: Headache
     Route: 048
     Dates: start: 20241127, end: 20241204
  25. AMISULPRIDE [Concomitant]
     Active Substance: AMISULPRIDE
     Dosage: 200 MILLIGRAM, BID (TWICE DAILY)
     Route: 065
     Dates: start: 20241231

REACTIONS (3)
  - Myocarditis [Recovered/Resolved]
  - Eosinophilia [Recovered/Resolved]
  - Product substitution issue [Unknown]

NARRATIVE: CASE EVENT DATE: 20241201
